FAERS Safety Report 20158266 (Version 5)
Quarter: 2022Q1

REPORT INFORMATION
  Report Type: Spontaneous
  Country: US (occurrence: US)
  Receive Date: 20211207
  Receipt Date: 20220302
  Transmission Date: 20220423
  Serious: Yes (Hospitalization, Other)
  Sender: FDA-Public Use
  Company Number: US-SANOFI-00876061

PATIENT
  Age: 91 Year
  Sex: Female
  Weight: 61.224 kg

DRUGS (11)
  1. PLAVIX [Suspect]
     Active Substance: CLOPIDOGREL BISULFATE
     Indication: Myocardial infarction
     Dosage: DRUG STRUCTURE DOSAGE : 75 MG DRUG INTERVAL DOSAGE : NA
     Route: 048
     Dates: start: 20210201, end: 20211120
  2. NITROBIDE [Concomitant]
     Indication: Blood pressure measurement
     Dosage: UNK
  3. COUMADIN [Concomitant]
     Active Substance: WARFARIN SODIUM
     Indication: Blood pressure measurement
     Dosage: UNK
  4. METOPROLOL [Concomitant]
     Active Substance: METOPROLOL
     Indication: Blood pressure measurement
     Dosage: UNK UNK, PRN
  5. DOXAZOSIN [Concomitant]
     Active Substance: DOXAZOSIN MESYLATE
     Indication: Blood pressure measurement
     Dosage: UNK UNK, PRN
  6. XANAX [Concomitant]
     Active Substance: ALPRAZOLAM
     Indication: Blood pressure measurement
     Dosage: UNK
  7. CLONIDINE [Concomitant]
     Active Substance: CLONIDINE
     Indication: Blood pressure measurement
     Dosage: UNK UNK, PRN
  8. LASIX [Concomitant]
     Active Substance: FUROSEMIDE
     Dosage: UNK
  9. WARFARIN [Concomitant]
     Active Substance: WARFARIN
     Indication: Myocardial infarction
     Dosage: UNK
  10. HEPARIN [Concomitant]
     Active Substance: HEPARIN SODIUM
     Indication: Myocardial infarction
     Dosage: UNK
  11. PREDNISONE [Concomitant]
     Active Substance: PREDNISONE

REACTIONS (7)
  - Deep vein thrombosis [Unknown]
  - Condition aggravated [Unknown]
  - Myocardial infarction [Unknown]
  - Thrombosis [Recovered/Resolved]
  - Peripheral swelling [Unknown]
  - Oedema peripheral [Unknown]
  - Pain in extremity [Unknown]

NARRATIVE: CASE EVENT DATE: 20211117
